FAERS Safety Report 18362678 (Version 1)
Quarter: 2020Q4

REPORT INFORMATION
  Report Type: Other
  Country: CN (occurrence: CN)
  Receive Date: 20201009
  Receipt Date: 20201009
  Transmission Date: 20210114
  Serious: Yes (Other)
  Sender: FDA-Public Use
  Company Number: CN-ROCHE-2690908

PATIENT

DRUGS (2)
  1. RITUXIMAB. [Suspect]
     Active Substance: RITUXIMAB
     Indication: NON-HODGKIN^S LYMPHOMA
     Dosage: ON DAYS 1, 8, 15, AND 22 OF CYCLE 1 AND ON DAY 1 OF CYCLES 4, 6, 8, AND 10
     Route: 041
  2. ZANUBRUTINIB [Suspect]
     Active Substance: ZANUBRUTINIB
     Indication: NON-HODGKIN^S LYMPHOMA
     Route: 048

REACTIONS (8)
  - Anaemia [Unknown]
  - Dyspnoea [Unknown]
  - White blood cell count decreased [Unknown]
  - Hypokalaemia [Unknown]
  - Infection [Unknown]
  - Pneumonia [Unknown]
  - Platelet count decreased [Unknown]
  - Neutrophil count decreased [Unknown]
